FAERS Safety Report 23504950 (Version 1)
Quarter: 2024Q1

REPORT INFORMATION
  Report Type: Spontaneous
  Country: GB (occurrence: GB)
  Receive Date: 20240209
  Receipt Date: 20240209
  Transmission Date: 20240409
  Serious: No
  Sender: FDA-Public Use
  Company Number: None

PATIENT
  Age: 58 Year
  Sex: Male
  Weight: 118 kg

DRUGS (24)
  1. GABAPENTIN [Suspect]
     Active Substance: GABAPENTIN
     Indication: Product used for unknown indication
     Dosage: UNK
     Route: 065
     Dates: start: 20230223
  2. AMITRIPTYLINE HYDROCHLORIDE [Concomitant]
     Active Substance: AMITRIPTYLINE HYDROCHLORIDE
     Indication: Product used for unknown indication
     Dosage: UNK, TAKE TWO EACH EVENING
     Route: 065
     Dates: start: 20201004
  3. AMLODIPINE [Concomitant]
     Active Substance: AMLODIPINE BESYLATE
     Indication: Product used for unknown indication
     Dosage: UNK, TAKE ONE TABLET ONCE A DAY
     Route: 065
     Dates: start: 20201004
  4. ASPIRIN [Concomitant]
     Active Substance: ASPIRIN
     Indication: Product used for unknown indication
     Dosage: UNK, OD (TAKE ONE TABLET ONCE A DAY OR AFTER FOOD)
     Route: 065
     Dates: start: 20201004
  5. ATORVASTATIN [Concomitant]
     Active Substance: ATORVASTATIN
     Indication: Product used for unknown indication
     Dosage: UNK, OD (TAKE ONE TABLET ONCE A DAY)
     Route: 065
     Dates: start: 20201004
  6. BISOPROLOL [Concomitant]
     Active Substance: BISOPROLOL\BISOPROLOL FUMARATE
     Indication: Product used for unknown indication
     Dosage: UNK, OD (TAKE ONE TABLET ONCE A DAY)
     Route: 065
     Dates: start: 20201004
  7. CAPSAICIN [Concomitant]
     Active Substance: CAPSAICIN
     Indication: Product used for unknown indication
     Dosage: UNK, TID (APPLY TDS TIMES/DAY)
     Route: 065
     Dates: start: 20210627, end: 20230223
  8. CLOPIDOGREL [Concomitant]
     Active Substance: CLOPIDOGREL BISULFATE
     Indication: Product used for unknown indication
     Dosage: UNK, OD (TAKE ONE TABLET ONCE A DAY WITH FOOD)
     Route: 065
     Dates: start: 20201004
  9. CODEINE PHOSPHATE [Concomitant]
     Active Substance: CODEINE PHOSPHATE
     Indication: Product used for unknown indication
     Dosage: UNK, QID (TAKE ONE 4 TIMES/DAY)
     Route: 065
     Dates: start: 20211021
  10. FUROSEMIDE [Concomitant]
     Active Substance: FUROSEMIDE
     Indication: Product used for unknown indication
     Dosage: UNK, OD (TAKE ONE TABLET EACH MORNING)
     Route: 065
     Dates: start: 20201004
  11. GABAPENTIN [Concomitant]
     Active Substance: GABAPENTIN
     Indication: Product used for unknown indication
     Dosage: UNK, HS (TAKE ONE AT NIGHT)
     Route: 065
     Dates: start: 20201025, end: 20230223
  12. HUMALOG [Concomitant]
     Active Substance: INSULIN LISPRO
     Indication: Product used for unknown indication
     Dosage: UNK, AS DIRECTED
     Route: 065
     Dates: start: 20201004
  13. LANSOPRAZOLE [Concomitant]
     Active Substance: LANSOPRAZOLE
     Indication: Product used for unknown indication
     Dosage: UNK, OD (TAKE ONE CAPSULE ONCE A DAY)
     Route: 065
     Dates: start: 20201004
  14. LANTUS [Concomitant]
     Active Substance: INSULIN GLARGINE
     Indication: Product used for unknown indication
     Dosage: UNK, AS DIRECTED
     Route: 065
     Dates: start: 20201004
  15. METFORMIN [Concomitant]
     Active Substance: METFORMIN HYDROCHLORIDE
     Indication: Product used for unknown indication
     Dosage: UNK, TAKE ONE TWICE DAILY
     Route: 065
     Dates: start: 20201004
  16. MIRTAZAPINE [Concomitant]
     Active Substance: MIRTAZAPINE
     Indication: Product used for unknown indication
     Dosage: UNK, (TAKE ONE TABLET EACH NIGHT)
     Route: 065
     Dates: start: 20201004
  17. NICORANDIL [Concomitant]
     Active Substance: NICORANDIL
     Indication: Product used for unknown indication
     Dosage: UNK, BID (TAKE ONE TABLET TWICE DAILY)
     Route: 065
     Dates: start: 20201004
  18. PREGABALIN [Concomitant]
     Active Substance: PREGABALIN
     Indication: Product used for unknown indication
     Dosage: UNK, TID (ONE THREE TIMES DAILY INCREASING AFTER ONE WEEK)
     Route: 065
     Dates: start: 20210412, end: 20230223
  19. QUININE [Concomitant]
     Active Substance: QUININE
     Indication: Product used for unknown indication
     Dosage: UNK, HS (AKE ONE TABLET EACH NIGHT)
     Route: 065
     Dates: start: 20211223
  20. RAMIPRIL [Concomitant]
     Active Substance: RAMIPRIL
     Indication: Product used for unknown indication
     Dosage: UNK, QD (TAKE ONE DAILY)
     Route: 065
     Dates: start: 20201004
  21. ALBUTEROL [Concomitant]
     Active Substance: ALBUTEROL
     Indication: Product used for unknown indication
     Dosage: UNK, QID (INHALE ONE OR TWO DOSES UP TO FOUR TIMES A DAY)
     Route: 065
     Dates: start: 20201004
  22. SEMAGLUTIDE [Concomitant]
     Active Substance: SEMAGLUTIDE
     Indication: Product used for unknown indication
     Dosage: UNK, OD (TAKE ONE TABLET ONCE A DAY. SWALLOWED WHOLE WIT.)
     Route: 065
     Dates: start: 20220505, end: 20221124
  23. SPIRONOLACTONE [Concomitant]
     Active Substance: SPIRONOLACTONE
     Indication: Product used for unknown indication
     Dosage: UNK, OD (TAKE ONE TABLET ONCE A DAY)
     Route: 065
     Dates: start: 20201004
  24. TAMSULOSIN HYDROCHLORIDE [Concomitant]
     Active Substance: TAMSULOSIN HYDROCHLORIDE
     Indication: Product used for unknown indication
     Dosage: UNK, OD (TAKE ONE EACH MORNING)
     Route: 065
     Dates: start: 20201004

REACTIONS (2)
  - Nightmare [Recovered/Resolved]
  - Sleep disorder [Unknown]

NARRATIVE: CASE EVENT DATE: 20230223
